FAERS Safety Report 5619020-4 (Version None)
Quarter: 2008Q1

REPORT INFORMATION
  Report Type: 
  Country: None (occurrence: None)
  Receive Date: 20080207
  Receipt Date: 20080111
  Transmission Date: 20080703
  Serious: No
  Sender: FDA-Public Use
  Company Number: US-BOEHRINGER INGELHEIM GMBH, GERMANY-2008-BP-00593BP

PATIENT
  Sex: Male

DRUGS (12)
  1. SPIRIVA [Suspect]
     Indication: CHRONIC OBSTRUCTIVE PULMONARY DISEASE
     Route: 055
     Dates: start: 20071215
  2. SPIRIVA [Suspect]
     Indication: EMPHYSEMA
  3. IMDUR [Concomitant]
     Route: 048
  4. PRILOSEC [Concomitant]
  5. AVANDIA [Concomitant]
     Route: 048
  6. AMARYL [Concomitant]
  7. ATENOLOL [Concomitant]
     Route: 048
  8. ADVAIR DISKUS 100/50 [Concomitant]
  9. ZOCOR [Concomitant]
  10. FLOMAX [Concomitant]
  11. ASPIRIN [Concomitant]
     Route: 048
  12. GLIMEPIRIDE [Concomitant]

REACTIONS (3)
  - DYSPNOEA [None]
  - OXYGEN SATURATION DECREASED [None]
  - PYREXIA [None]
